FAERS Safety Report 8504591 (Version 6)
Quarter: 2014Q2

REPORT INFORMATION
  Report Type: Report from Study
  Country: PL (occurrence: PL)
  Receive Date: 20120411
  Receipt Date: 20140620
  Transmission Date: 20141212
  Serious: Yes (Hospitalization)
  Sender: FDA-Public Use
  Company Number: PHHO2012PL005611

PATIENT
  Sex: 0

DRUGS (6)
  1. FTY 720 [Suspect]
     Indication: MULTIPLE SCLEROSIS
     Dosage: 0.5 MG, QD
     Route: 048
     Dates: start: 20110418, end: 20130911
  2. LERIVON [Concomitant]
     Indication: AFFECTIVE DISORDER
     Dosage: 30 MG, QD
     Route: 048
     Dates: start: 20100816
  3. MACROPEN [Concomitant]
     Indication: MUSCLE SPASTICITY
     Dosage: 10 MG, TID
     Route: 048
     Dates: start: 20110120
  4. BISOCARD [Concomitant]
     Indication: HYPERTENSION
     Dates: start: 20100903
  5. HYDROXYZINUM [Concomitant]
     Indication: PRURITUS
     Dates: start: 20110120
  6. CEREVON [Concomitant]
     Indication: AFFECTIVE DISORDER
     Dates: start: 20110601

REACTIONS (2)
  - Abdominal pain upper [Not Recovered/Not Resolved]
  - Flatulence [Not Recovered/Not Resolved]
